FAERS Safety Report 11037231 (Version 1)
Quarter: 2015Q2

REPORT INFORMATION
  Report Type: Spontaneous
  Country: IT (occurrence: None)
  Receive Date: 20150414
  Receipt Date: 20150414
  Transmission Date: 20150821
  Serious: Yes (Other)
  Sender: FDA-Public Use
  Company Number: 20151102

PATIENT
  Age: 68 Year
  Sex: Female

DRUGS (5)
  1. MEDROL [Concomitant]
     Active Substance: METHYLPREDNISOLONE
  2. SIVASTIN (SIMVASTATIN ) [Concomitant]
  3. ORENCIA [Suspect]
     Active Substance: ABATACEPT
     Indication: RHEUMATOID ARTHRITIS
     Dosage: 1 X 750 MILLIGRAM IN 1 MONTH, INTRAVENOUS (NOT OTHERWISE SPECIFIED)?
     Route: 042
     Dates: start: 20140313, end: 20140417
  4. PANTORC [Concomitant]
     Active Substance: PANTOPRAZOLE SODIUM
  5. METHOTREXATE [Suspect]
     Active Substance: METHOTREXATE
     Indication: RHEUMATOID ARTHRITIS
     Dosage: 1 X 15 MILLIGRAM IN 1 WEEK, INTRAMUSCULAR?
     Route: 030
     Dates: start: 20130413, end: 20140417

REACTIONS (1)
  - Nodule [None]

NARRATIVE: CASE EVENT DATE: 20140417
